FAERS Safety Report 7022977-0 (Version None)
Quarter: 2010Q3

REPORT INFORMATION
  Report Type: 
  Country: None (occurrence: None)
  Receive Date: 20100916
  Receipt Date: 20100802
  Transmission Date: 20110219
  Serious: No
  Sender: FDA-Public Use
  Company Number: DKLU1064087

PATIENT
  Age: 50 Year
  Sex: Male

DRUGS (2)
  1. SABRIL [Suspect]
     Indication: COMPLEX PARTIAL SEIZURES
     Dates: start: 20100701, end: 20100101
  2. SABRIL [Suspect]
     Indication: COMPLEX PARTIAL SEIZURES
     Dates: start: 20100101

REACTIONS (1)
  - SOMNOLENCE [None]
